FAERS Safety Report 6111353-0 (Version None)
Quarter: 2009Q1

REPORT INFORMATION
  Report Type: 
  Country: None (occurrence: None)
  Receive Date: 20090311
  Receipt Date: 20090306
  Transmission Date: 20090719
  Serious: Yes (Hospitalization)
  Sender: FDA-Public Use
  Company Number: A0772439A

PATIENT
  Age: 24 Year
  Sex: Female

DRUGS (6)
  1. CLAVULIN [Suspect]
     Indication: BACTERIAL INFECTION
     Dates: start: 20090304
  2. BROMOPRIDE [Suspect]
     Indication: VOMITING
     Route: 042
  3. FEXOFENADINE [Concomitant]
  4. EPHEDRINE [Concomitant]
  5. FORMOTEROL FUMARATE [Concomitant]
  6. BUDESONIDE [Concomitant]

REACTIONS (2)
  - DYSTONIA [None]
  - VOMITING [None]
